FAERS Safety Report 6525308-5 (Version None)
Quarter: 2010Q1

REPORT INFORMATION
  Report Type: 
  Country: None (occurrence: None)
  Receive Date: 20100104
  Receipt Date: 20091229
  Transmission Date: 20100710
  Serious: Yes (Death, Hospitalization)
  Sender: FDA-Public Use
  Company Number: IN-ELI_LILLY_AND_COMPANY-IN200912005904

PATIENT
  Age: 54 Year
  Sex: Male

DRUGS (3)
  1. XIGRIS [Suspect]
     Indication: MULTI-ORGAN FAILURE
     Dosage: UNK, UNKNOWN (96 HOURS THERAPY)
     Route: 042
     Dates: start: 20091215, end: 20091201
  2. TAMIFLU [Concomitant]
     Indication: INFLUENZA
     Dosage: UNK, UNKNOWN
     Route: 065
     Dates: start: 20091201
  3. ANTIBIOTICS [Concomitant]
     Indication: INFLUENZA
     Dosage: UNK, UNKNOWN
     Route: 065
     Dates: start: 20091201

REACTIONS (2)
  - BLOOD PRESSURE DECREASED [None]
  - HAEMOGLOBIN DECREASED [None]
